FAERS Safety Report 5747103-7 (Version None)
Quarter: 2008Q2

REPORT INFORMATION
  Report Type: 
  Country: None (occurrence: None)
  Receive Date: 20080522
  Receipt Date: 20080513
  Transmission Date: 20081010
  Serious: Yes (Hospitalization)
  Sender: FDA-Public Use
  Company Number: US-AMGEN-QUU276704

PATIENT
  Sex: Male

DRUGS (9)
  1. ENBREL [Suspect]
     Indication: ANKYLOSING SPONDYLITIS
     Route: 058
     Dates: start: 20040823, end: 20041005
  2. ZANAFLEX [Concomitant]
     Dates: start: 20050405
  3. XANAX [Concomitant]
     Dates: start: 20060711
  4. AMBIEN [Concomitant]
     Dates: start: 20040805
  5. LEXAPRO [Concomitant]
     Dates: start: 20050405
  6. TESTOSTERONE [Concomitant]
     Dates: start: 20050405
  7. TRAMADOL HCL [Concomitant]
     Dates: start: 20050405
  8. ELAVIL [Concomitant]
     Dates: start: 20050405
  9. LORTAB [Concomitant]
     Dates: start: 20040806

REACTIONS (3)
  - CERVICAL VERTEBRAL FRACTURE [None]
  - PARAPLEGIA [None]
  - POST PROCEDURAL COMPLICATION [None]
